FAERS Safety Report 9558101 (Version 1)
Quarter: 2013Q3

REPORT INFORMATION
  Report Type: Spontaneous
  Country: IT (occurrence: IT)
  Receive Date: 20130926
  Receipt Date: 20130926
  Transmission Date: 20140515
  Serious: Yes (Other)
  Sender: FDA-Public Use
  Company Number: IT-TEVA-434067ISR

PATIENT
  Age: 75 Year
  Sex: Male

DRUGS (6)
  1. AMIODARONE CLORIDRATO [Suspect]
     Dates: start: 20130101, end: 20130704
  2. BISOPROLOLO FUMARATO [Suspect]
     Dates: start: 20130101, end: 20130704
  3. COUMADIN 5MG [Concomitant]
  4. ROSUVASTATINA SALE DI CALCIO [Concomitant]
  5. ACIDO ACETILSALICILICO [Concomitant]
  6. LANSOPRAZOLO [Concomitant]

REACTIONS (2)
  - Syncope [Recovering/Resolving]
  - Injury [Recovering/Resolving]
